FAERS Safety Report 25074912 (Version 1)
Quarter: 2025Q1

REPORT INFORMATION
  Report Type: Spontaneous
  Country: US (occurrence: US)
  Receive Date: 20250313
  Receipt Date: 20250313
  Transmission Date: 20250409
  Serious: Yes (Life-Threatening, Hospitalization)
  Sender: MYLAN
  Company Number: US-MYLANLABS-2025M1021183

PATIENT
  Age: 33 Year
  Sex: Female

DRUGS (6)
  1. CHLORTHALIDONE [Suspect]
     Active Substance: CHLORTHALIDONE
     Indication: Hypertension
  2. LOSARTAN [Suspect]
     Active Substance: LOSARTAN
     Indication: Hypertension
  3. LABETALOL [Suspect]
     Active Substance: LABETALOL
     Indication: Hypertension
  4. NIFEDIPINE [Suspect]
     Active Substance: NIFEDIPINE
     Indication: Hypertension
  5. TOPAMAX [Suspect]
     Active Substance: TOPIRAMATE
     Indication: Posterior reversible encephalopathy syndrome
  6. HYDROCODONE [Suspect]
     Active Substance: HYDROCODONE
     Indication: Posterior reversible encephalopathy syndrome

REACTIONS (1)
  - Drug ineffective [Unknown]
